FAERS Safety Report 5699155-0 (Version None)
Quarter: 2008Q2

REPORT INFORMATION
  Report Type: 
  Country: None (occurrence: None)
  Receive Date: 20080407
  Receipt Date: 20080407
  Transmission Date: 20081010
  Serious: Yes (Disabling)
  Sender: FDA-Public Use
  Company Number: None

PATIENT
  Age: 47 Year
  Sex: Female
  Weight: 40.8237 kg

DRUGS (1)
  1. FOSAMAX [Suspect]
     Indication: OSTEOPOROSIS
     Dosage: 1 PILL WEEKLY PO
     Route: 048
     Dates: start: 20080316, end: 20080330

REACTIONS (9)
  - ARTHRALGIA [None]
  - BACK PAIN [None]
  - DIARRHOEA [None]
  - FLATULENCE [None]
  - MUSCULOSKELETAL PAIN [None]
  - OEDEMA PERIPHERAL [None]
  - PAIN IN EXTREMITY [None]
  - SENSATION OF PRESSURE [None]
  - SKIN BURNING SENSATION [None]
